FAERS Safety Report 7906032-0 (Version None)
Quarter: 2011Q4

REPORT INFORMATION
  Report Type: 
  Country: None (occurrence: None)
  Receive Date: 20111110
  Receipt Date: 20111106
  Transmission Date: 20120403
  Serious: Yes (Death, Hospitalization)
  Sender: FDA-Public Use
  Company Number: IL-BRISTOL-MYERS SQUIBB COMPANY-16188807

PATIENT
  Age: 60 Year
  Sex: Female

DRUGS (1)
  1. IPILIMUMAB [Suspect]
     Dosage: COURSE: 1
     Dates: start: 20110714

REACTIONS (4)
  - HAEMOGLOBIN DECREASED [None]
  - NEOPLASM MALIGNANT [None]
  - BACK PAIN [None]
  - FATIGUE [None]
